FAERS Safety Report 6727171-6 (Version None)
Quarter: 2010Q2

REPORT INFORMATION
  Report Type: 
  Country: None (occurrence: None)
  Receive Date: 20100517
  Receipt Date: 20100506
  Transmission Date: 20101027
  Serious: Yes (Other)
  Sender: FDA-Public Use
  Company Number: CA-JNJFOC-20100503818

PATIENT
  Sex: Female
  Weight: 54.5 kg

DRUGS (2)
  1. REMICADE [Suspect]
     Indication: CROHN'S DISEASE
     Route: 042
  2. ALL OTHER THERAPEUTIC PRODUCTS [Concomitant]
     Indication: HAEMOGLOBIN DECREASED

REACTIONS (1)
  - CATARACT [None]
